FAERS Safety Report 7756280-8 (Version None)
Quarter: 2011Q3

REPORT INFORMATION
  Report Type: 
  Country: None (occurrence: None)
  Receive Date: 20110916
  Receipt Date: 20110907
  Transmission Date: 20111222
  Serious: Yes (Death)
  Sender: FDA-Public Use
  Company Number: US-CELGENEUS-163-21880-11083284

PATIENT
  Sex: Female
  Weight: 93.524 kg

DRUGS (6)
  1. OXYCODONE HCL [Concomitant]
     Indication: ABDOMINAL PAIN
     Dosage: 5 MILLIGRAM
     Route: 065
     Dates: start: 20100526
  2. OXYBUTYNIN [Concomitant]
     Dosage: 5 MILLIGRAM
     Route: 065
     Dates: start: 20100526
  3. REVLIMID [Suspect]
     Dosage: 25 MILLIGRAM
     Route: 048
     Dates: start: 20100610, end: 20100617
  4. LACTULOSE [Concomitant]
     Indication: HEPATIC ENCEPHALOPATHY
     Dosage: 20 MILLIGRAM
     Route: 065
     Dates: start: 20100526
  5. TAMSULOSIN HCL [Concomitant]
     Dosage: .4 MILLIGRAM
     Route: 065
     Dates: start: 20100526
  6. PANTOPRAZOLE [Concomitant]
     Dosage: 40 MILLIGRAM
     Route: 065
     Dates: start: 20100526

REACTIONS (1)
  - HEPATIC NEOPLASM MALIGNANT [None]
